FAERS Safety Report 11655857 (Version 1)
Quarter: 2015Q4

REPORT INFORMATION
  Report Type: Report from Study
  Country: US (occurrence: US)
  Receive Date: 20151023
  Receipt Date: 20151023
  Transmission Date: 20160304
  Serious: No
  Sender: FDA-Public Use
  Company Number: US-AMGEN-USASL2015079776

PATIENT
  Age: 64 Year
  Sex: Male

DRUGS (2)
  1. KYPROLIS [Suspect]
     Active Substance: CARFILZOMIB
     Indication: PLASMA CELL MYELOMA
     Dosage: UNK UNK, 2 TIMES/WK
     Route: 042
     Dates: start: 201506
  2. OXYCODONE [Concomitant]
     Active Substance: OXYCODONE
     Indication: BACK PAIN
     Dosage: UNK

REACTIONS (8)
  - Muscle spasms [Unknown]
  - Sciatica [Unknown]
  - Pain [Unknown]
  - Burning sensation [Unknown]
  - Gait disturbance [Unknown]
  - Fatigue [Unknown]
  - Pain in extremity [Recovering/Resolving]
  - Neuropathy peripheral [Unknown]
